FAERS Safety Report 10727136 (Version 2)
Quarter: 2015Q1

REPORT INFORMATION
  Report Type: Spontaneous
  Country: FR (occurrence: FR)
  Receive Date: 20150121
  Receipt Date: 20150206
  Transmission Date: 20150721
  Serious: Yes (Other)
  Sender: FDA-Public Use
  Company Number: FR-ASTRAZENECA-2015SE05043

PATIENT
  Age: 716 Month
  Sex: Male

DRUGS (2)
  1. EMLA [Suspect]
     Active Substance: LIDOCAINE\PRILOCAINE
     Route: 061
     Dates: start: 201401
  2. EMLA [Suspect]
     Active Substance: LIDOCAINE\PRILOCAINE
     Dosage: AROUND 1 PATCH A WEEK
     Route: 061
     Dates: start: 201412

REACTIONS (2)
  - Pain [Not Recovered/Not Resolved]
  - Drug ineffective [Not Recovered/Not Resolved]

NARRATIVE: CASE EVENT DATE: 201412
